FAERS Safety Report 13334995 (Version 1)
Quarter: 2017Q1

REPORT INFORMATION
  Report Type: Spontaneous
  Country: JP (occurrence: JP)
  Receive Date: 20170314
  Receipt Date: 20170314
  Transmission Date: 20170428
  Serious: Yes (Other)
  Sender: FDA-Public Use
  Company Number: JP-BAUSCH-BL-2017-006493

PATIENT
  Age: 62 Year
  Sex: Female

DRUGS (9)
  1. FLUOROURACIL. [Suspect]
     Active Substance: FLUOROURACIL
     Indication: METASTASES TO LIVER
     Dosage: ONE CYCLE 14 DAYS, 46 HR
     Route: 041
     Dates: start: 201206, end: 201308
  2. FOLINIC ACID [Suspect]
     Active Substance: LEUCOVORIN
     Indication: NEUROENDOCRINE CARCINOMA METASTATIC
     Dosage: ONE CYCLE 14 DAYS
     Route: 065
     Dates: start: 201206, end: 201308
  3. IRINOTECAN [Suspect]
     Active Substance: IRINOTECAN
     Indication: NEUROENDOCRINE CARCINOMA METASTATIC
     Dosage: ONE CYCLE 14 DAYS, DAY 1 AT 80% NORMAL DOSE OF 150 MG/M2
     Route: 065
     Dates: start: 201206, end: 201308
  4. BEVACIZUMAB [Suspect]
     Active Substance: BEVACIZUMAB
     Indication: METASTASES TO LIVER
     Dosage: ONE CYCLE 14 DAYS, DAY 1 (FROM SECOND CYCLE)
     Dates: start: 2012, end: 201308
  5. MIRIPLATIN [Concomitant]
     Active Substance: MIRIPLATIN
     Indication: PRODUCT USED FOR UNKNOWN INDICATION
  6. IRINOTECAN [Suspect]
     Active Substance: IRINOTECAN
     Indication: METASTASES TO LIVER
  7. BEVACIZUMAB [Suspect]
     Active Substance: BEVACIZUMAB
     Indication: NEUROENDOCRINE CARCINOMA METASTATIC
     Dosage: ONE CYCLE 14 DAYS, DAY 1
     Route: 065
     Dates: start: 201206
  8. FLUOROURACIL. [Suspect]
     Active Substance: FLUOROURACIL
     Indication: NEUROENDOCRINE CARCINOMA METASTATIC
     Dosage: ONE CYCLE 14 DAYS, DAY 1
     Route: 040
     Dates: start: 201206, end: 201308
  9. FOLINIC ACID [Suspect]
     Active Substance: LEUCOVORIN
     Indication: METASTASES TO LIVER

REACTIONS (1)
  - Neutropenia [Unknown]
